FAERS Safety Report 5531297-2 (Version None)
Quarter: 2007Q4

REPORT INFORMATION
  Report Type: 
  Country: None (occurrence: None)
  Receive Date: 20071128
  Receipt Date: 20071114
  Transmission Date: 20080405
  Serious: Yes (Other)
  Sender: FDA-Public Use
  Company Number: 100#08#2007-04798

PATIENT
  Age: 57 Year
  Sex: Male

DRUGS (5)
  1. ISONIAZID [Suspect]
     Indication: LYMPHADENOPATHY
     Dosage: 300 MG ; 100 MG/DAY THEN INCREASED TO 200 MG/DAY (REINTRODUCTION)
  2. RIFAMPICIN [Concomitant]
  3. ETHAMBUTOL HYDROCHLORIDE [Concomitant]
  4. PYRAZINAMIDE [Concomitant]
  5. PYRIDOXINE                                 (PYRIDOXINE) [Concomitant]

REACTIONS (7)
  - CEREBELLAR SYNDROME [None]
  - CEREBRAL ATROPHY [None]
  - DRUG TOXICITY [None]
  - DYSARTHRIA [None]
  - GAIT DISTURBANCE [None]
  - HAEMOGLOBIN DECREASED [None]
  - TREMOR [None]
